FAERS Safety Report 7051465-0 (Version None)
Quarter: 2010Q4

REPORT INFORMATION
  Report Type: 
  Country: None (occurrence: None)
  Receive Date: 20101019
  Receipt Date: 20101018
  Transmission Date: 20110411
  Serious: Yes (Hospitalization)
  Sender: FDA-Public Use
  Company Number: A0887164A

PATIENT

DRUGS (1)
  1. VENTOLIN [Suspect]
     Indication: PRODUCT USED FOR UNKNOWN INDICATION
     Route: 055

REACTIONS (7)
  - ASTHENIA [None]
  - DYSPNOEA [None]
  - DYSURIA [None]
  - FLATULENCE [None]
  - MALAISE [None]
  - PRODUCT QUALITY ISSUE [None]
  - TREMOR [None]
